FAERS Safety Report 9961548 (Version 1)
Quarter: 2014Q1

REPORT INFORMATION
  Report Type: Spontaneous
  Country: FR (occurrence: FR)
  Receive Date: 20140305
  Receipt Date: 20140305
  Transmission Date: 20141002
  Serious: Yes (Other)
  Sender: FDA-Public Use
  Company Number: FR-VERTEX PHARMACEUTICALS INC-2014-001076

PATIENT
  Age: 56 Year
  Sex: Male

DRUGS (3)
  1. INCIVO [Suspect]
     Indication: HEPATITIS C
     Dosage: STRENGTH 375 MG, 4 TID
     Route: 048
     Dates: start: 20130321
  2. PEGASYS [Suspect]
     Indication: HEPATITIS C
     Dosage: DOSAGE FORM: INJECTION
     Route: 058
     Dates: start: 20130321
  3. COPEGUS [Suspect]
     Indication: HEPATITIS C
     Dosage: FIVE TIMES A DAY
     Route: 048
     Dates: start: 20130321

REACTIONS (1)
  - Neutropenia [Recovered/Resolved]
